FAERS Safety Report 6016542-1 (Version None)
Quarter: 2008Q4

REPORT INFORMATION
  Report Type: 
  Country: None (occurrence: None)
  Receive Date: 20081222
  Receipt Date: 20081216
  Transmission Date: 20090506
  Serious: Yes (Other)
  Sender: FDA-Public Use
  Company Number: JP-ASTRAZENECA-2008SE05777

PATIENT
  Age: 59 Year
  Sex: Female
  Weight: 74 kg

DRUGS (7)
  1. AMIAS 2MG TABLETS [Suspect]
     Indication: HYPERTENSION
     Route: 048
     Dates: start: 20081105, end: 20081119
  2. ATENOLOL [Concomitant]
     Indication: HYPERTENSION
     Route: 048
     Dates: start: 20080108
  3. CARBIMAZOLE [Concomitant]
     Indication: HYPERTHYROIDISM
     Route: 048
     Dates: start: 20070806
  4. COD LIVER OIL [Concomitant]
     Route: 048
  5. GLUCOSAMINE SULPHATE [Concomitant]
     Route: 048
     Dates: start: 19980101
  6. MULTI-VITAMIN [Concomitant]
     Route: 065
  7. RAMIPRIL [Concomitant]
     Indication: HYPERTENSION
     Route: 048
     Dates: start: 20050919

REACTIONS (4)
  - DYSPHONIA [None]
  - DYSPNOEA [None]
  - HEADACHE [None]
  - OROPHARYNGEAL PAIN [None]
